FAERS Safety Report 6789276-3 (Version None)
Quarter: 2010Q2

REPORT INFORMATION
  Report Type: 
  Country: None (occurrence: None)
  Receive Date: 20100623
  Receipt Date: 20090521
  Transmission Date: 20101027
  Serious: Yes (Other)
  Sender: FDA-Public Use
  Company Number: US-PFIZER INC-2008055292

PATIENT
  Sex: Female
  Weight: 59 kg

DRUGS (7)
  1. PROVERA [Suspect]
     Indication: HORMONE REPLACEMENT THERAPY
     Dosage: UNK
     Route: 048
     Dates: start: 19930901, end: 19960901
  2. OGEN [Suspect]
     Indication: HORMONE REPLACEMENT THERAPY
     Dosage: UNK
     Route: 048
     Dates: start: 19930901, end: 19960901
  3. CYCRIN [Suspect]
     Indication: HORMONE REPLACEMENT THERAPY
     Dosage: UNK
     Dates: start: 19930901, end: 19960901
  4. PREMPRO [Suspect]
     Indication: HORMONE REPLACEMENT THERAPY
     Dosage: 0.625/2.5 MG
     Dates: start: 19960901, end: 20030301
  5. LIPITOR [Concomitant]
     Indication: BLOOD CHOLESTEROL INCREASED
     Dosage: 10 MG, UNK
     Dates: start: 20020118
  6. IMIPRAMINE [Concomitant]
     Indication: DEPRESSION
     Dosage: 50 MG, UNK
  7. CLOMIPRAMINE [Concomitant]
     Indication: DEPRESSION
     Dosage: 25 MG, UNK
     Dates: start: 19990603

REACTIONS (1)
  - BREAST CANCER [None]
